FAERS Safety Report 21158817 (Version 1)
Quarter: 2022Q3

REPORT INFORMATION
  Report Type: Spontaneous
  Country: US (occurrence: None)
  Receive Date: 20220802
  Receipt Date: 20220802
  Transmission Date: 20221026
  Serious: No
  Sender: FDA-Public Use
  Company Number: 2022A253348

PATIENT
  Age: 898 Month
  Sex: Male

DRUGS (2)
  1. SYMBICORT [Suspect]
     Active Substance: BUDESONIDE\FORMOTEROL FUMARATE DIHYDRATE
     Dosage: 160/4.5 MCG
     Route: 055
  2. WIXELA INHUB [Concomitant]
     Active Substance: FLUTICASONE PROPIONATE\SALMETEROL XINAFOATE
     Route: 065

REACTIONS (6)
  - COVID-19 [Unknown]
  - Dyspnoea [Unknown]
  - Respiratory disorder [Unknown]
  - Hypersensitivity [Unknown]
  - Cough [Unknown]
  - Aphonia [Unknown]

NARRATIVE: CASE EVENT DATE: 20220501
